FAERS Safety Report 17424900 (Version 3)
Quarter: 2020Q1

REPORT INFORMATION
  Report Type: Spontaneous
  Country: CN (occurrence: CN)
  Receive Date: 20200217
  Receipt Date: 20200328
  Transmission Date: 20200409
  Serious: Yes (Hospitalization, Other)
  Sender: FDA-Public Use
  Company Number: CN-AXELLIA-002979

PATIENT
  Age: 16 Month
  Sex: Male

DRUGS (2)
  1. CEFTIZOXIME [Concomitant]
     Active Substance: CEFTIZOXIME
     Dosage: 450 MG TWICE DAILY
  2. VANCOMYCIN [Suspect]
     Active Substance: VANCOMYCIN
     Indication: OSTEOMYELITIS
     Dosage: ON HOSPITAL DAY 3
     Route: 042

REACTIONS (4)
  - Pancytopenia [Recovered/Resolved]
  - Rash [Recovered/Resolved]
  - Pneumonia [Recovered/Resolved]
  - Rales [Recovered/Resolved]
